FAERS Safety Report 20491900 (Version 7)
Quarter: 2022Q2

REPORT INFORMATION
  Report Type: Spontaneous
  Country: US (occurrence: US)
  Receive Date: 20220218
  Receipt Date: 20220518
  Transmission Date: 20220721
  Serious: Yes (Life-Threatening, Hospitalization, Disabling, Other)
  Sender: FDA-Public Use
  Company Number: US-NOVARTISPH-NVSC2022US037169

PATIENT
  Age: 17 Year
  Sex: Male

DRUGS (5)
  1. ADAKVEO [Suspect]
     Active Substance: CRIZANLIZUMAB-TMCA
     Indication: Sickle cell anaemia with crisis
     Dosage: 300 MG/KG, QMO
     Route: 042
     Dates: start: 20220104, end: 20220104
  2. ADAKVEO [Suspect]
     Active Substance: CRIZANLIZUMAB-TMCA
     Indication: Hip arthroplasty
     Dosage: 5 MG/KG, QMO
     Route: 042
     Dates: start: 20220113, end: 20220113
  3. ADAKVEO [Suspect]
     Active Substance: CRIZANLIZUMAB-TMCA
     Dosage: 200 MG
     Route: 042
     Dates: start: 20220113, end: 20220113
  4. ADAKVEO [Suspect]
     Active Substance: CRIZANLIZUMAB-TMCA
     Dosage: 300 MG/KG, QMO
     Route: 042
     Dates: start: 20220118, end: 20220118
  5. ADAKVEO [Suspect]
     Active Substance: CRIZANLIZUMAB-TMCA
     Dosage: 300 MG
     Route: 042
     Dates: start: 20220127, end: 20220127

REACTIONS (14)
  - Acute chest syndrome [Not Recovered/Not Resolved]
  - Fat embolism [Not Recovered/Not Resolved]
  - Pneumonia aspiration [Unknown]
  - Aspiration [Unknown]
  - Acute respiratory distress syndrome [Unknown]
  - Pulmonary congestion [Unknown]
  - Bacterial infection [Unknown]
  - Hypoxia [Not Recovered/Not Resolved]
  - Platelet count decreased [Unknown]
  - Infusion related reaction [Unknown]
  - Chest pain [Unknown]
  - Screaming [Unknown]
  - Incorrect dose administered [Unknown]
  - Product supply issue [Unknown]

NARRATIVE: CASE EVENT DATE: 20220113
